FAERS Safety Report 6559021-5 (Version None)
Quarter: 2010Q1

REPORT INFORMATION
  Report Type: 
  Country: None (occurrence: None)
  Receive Date: 20100129
  Receipt Date: 20100120
  Transmission Date: 20100710
  Serious: Yes (Life-Threatening)
  Sender: FDA-Public Use
  Company Number: JP-BAYER-200812148BYL

PATIENT
  Age: 79 Year
  Sex: Female

DRUGS (17)
  1. ASPIRIN [Suspect]
     Indication: MYOCARDIAL INFARCTION
     Dosage: TOTAL DAILY DOSE: 200 MG  UNIT DOSE: 100 MG
     Route: 048
     Dates: end: 20080905
  2. IOPAMIDOL [Suspect]
     Indication: PERCUTANEOUS CORONARY INTERVENTION
     Route: 022
     Dates: start: 20080820, end: 20080820
  3. ARTIST [Suspect]
     Indication: DRUG USE FOR UNKNOWN INDICATION
     Route: 048
     Dates: end: 20080901
  4. GLYCORAN [Suspect]
     Indication: DRUG USE FOR UNKNOWN INDICATION
     Route: 048
     Dates: end: 20080901
  5. CEFAMEZIN [Suspect]
     Indication: DRUG USE FOR UNKNOWN INDICATION
     Route: 065
     Dates: end: 20080901
  6. PENTCILLIN [Suspect]
     Indication: INFECTION
     Route: 065
     Dates: start: 20080901
  7. CRAVIT [Suspect]
     Indication: INFECTION
     Route: 048
     Dates: start: 20080901, end: 20080905
  8. SIGMART [Suspect]
     Indication: DRUG USE FOR UNKNOWN INDICATION
     Route: 048
     Dates: end: 20080904
  9. MILMAG [Suspect]
     Indication: DRUG USE FOR UNKNOWN INDICATION
     Route: 048
     Dates: end: 20080904
  10. ACTOS [Suspect]
     Indication: DRUG USE FOR UNKNOWN INDICATION
     Route: 048
     Dates: end: 20080904
  11. MEVALOTIN [Suspect]
     Indication: DRUG USE FOR UNKNOWN INDICATION
     Route: 048
     Dates: end: 20080904
  12. OLMETEC [Suspect]
     Indication: DRUG USE FOR UNKNOWN INDICATION
     Route: 048
     Dates: end: 20080904
  13. PANALDINE [Suspect]
     Indication: DRUG USE FOR UNKNOWN INDICATION
     Route: 048
     Dates: end: 20080904
  14. PLAVIX [Suspect]
     Indication: DRUG USE FOR UNKNOWN INDICATION
     Route: 048
     Dates: start: 20080904, end: 20080905
  15. TAKEPRON [Suspect]
     Indication: DRUG USE FOR UNKNOWN INDICATION
     Route: 048
  16. PLETAL [Suspect]
     Indication: DRUG USE FOR UNKNOWN INDICATION
     Route: 048
  17. HEPARIN [Concomitant]
     Indication: DRUG USE FOR UNKNOWN INDICATION
     Route: 065
     Dates: start: 20080905

REACTIONS (3)
  - ACUTE GENERALISED EXANTHEMATOUS PUSTULOSIS [None]
  - ACUTE RESPIRATORY DISTRESS SYNDROME [None]
  - RENAL IMPAIRMENT [None]
